FAERS Safety Report 5500189-7 (Version None)
Quarter: 2007Q4

REPORT INFORMATION
  Report Type: 
  Country: None (occurrence: None)
  Receive Date: 20071025
  Receipt Date: 20071001
  Transmission Date: 20080405
  Serious: Yes (Death)
  Sender: FDA-Public Use
  Company Number: MC200700641

PATIENT
  Age: 83 Year
  Sex: Male
  Weight: 66 kg

DRUGS (2)
  1. ANGIOMAX [Suspect]
     Indication: CORONARY ARTERY BYPASS
     Dosage: 50 MG, INTRAVENOUS
     Route: 042
     Dates: start: 20070221, end: 20070221
  2. ANGIOMAX [Suspect]
     Indication: HEPARIN-INDUCED THROMBOCYTOPENIA
     Dosage: 50 MG, INTRAVENOUS
     Route: 042
     Dates: start: 20070221, end: 20070221

REACTIONS (3)
  - HAEMODYNAMIC INSTABILITY [None]
  - HAEMOTHORAX [None]
  - PROCEDURAL COMPLICATION [None]
